FAERS Safety Report 8884548 (Version 2)
Quarter: 2012Q4

REPORT INFORMATION
  Report Type: 
  Country: US (occurrence: US)
  Receive Date: 20121102
  Receipt Date: 20121122
  Transmission Date: 20130627
  Serious: Yes (Other)
  Sender: FDA-Public Use
  Company Number: US-PFIZER INC-2012272916

PATIENT
  Age: 85 Year
  Sex: Male
  Weight: 72.56 kg

DRUGS (4)
  1. LYRICA [Suspect]
     Indication: NERVE PAIN
     Dosage: 75 mg, 1x/day
     Route: 048
     Dates: start: 201209, end: 201209
  2. LYRICA [Suspect]
     Dosage: 75 mg, 2x/day
     Route: 048
     Dates: start: 201209, end: 201209
  3. LYRICA [Suspect]
     Dosage: 75 mg, 1x/day
     Route: 048
     Dates: start: 201209
  4. HYDROCODONE [Concomitant]
     Indication: NERVE PAIN
     Dosage: UNK, 1x/day

REACTIONS (2)
  - Hallucination [Recovered/Resolved]
  - Neuralgia [Unknown]
